FAERS Safety Report 8516799-9 (Version None)
Quarter: 2012Q3

REPORT INFORMATION
  Report Type: 
  Country: None (occurrence: None)
  Receive Date: 20120718
  Receipt Date: 20120709
  Transmission Date: 20120928
  Serious: Yes (Hospitalization)
  Sender: FDA-Public Use
  Company Number: US-GENZYME-FABR-1002187

PATIENT
  Sex: Male

DRUGS (2)
  1. ASPIRIN [Concomitant]
     Indication: ANTICOAGULANT THERAPY
     Dosage: 100 MG, QD
     Route: 065
     Dates: start: 20040101
  2. FABRAZYME [Suspect]
     Indication: FABRY'S DISEASE
     Dosage: 75 MG, Q2W
     Route: 042
     Dates: start: 20040406

REACTIONS (2)
  - AORTIC DILATATION [None]
  - BICUSPID AORTIC VALVE [None]
